FAERS Safety Report 11722762 (Version 2)
Quarter: 2015Q4

REPORT INFORMATION
  Report Type: Report from Study
  Country: US (occurrence: US)
  Receive Date: 20151111
  Receipt Date: 20151203
  Transmission Date: 20160304
  Serious: Yes (Other)
  Sender: FDA-Public Use
  Company Number: US-GILEAD-2015-0181607

PATIENT
  Age: 72 Year
  Sex: Female

DRUGS (1)
  1. AMBRISENTAN [Suspect]
     Active Substance: AMBRISENTAN
     Indication: PRODUCT USED FOR UNKNOWN INDICATION
     Dosage: 5 MG, QD
     Route: 065
     Dates: start: 20151009, end: 2015

REACTIONS (7)
  - Angina pectoris [Unknown]
  - Migraine [Recovering/Resolving]
  - Pyrexia [Unknown]
  - Nausea [Recovering/Resolving]
  - Hypersensitivity [Unknown]
  - Abdominal pain upper [Unknown]
  - Fatigue [Unknown]
